FAERS Safety Report 16894464 (Version 4)
Quarter: 2019Q4

REPORT INFORMATION
  Report Type: Spontaneous
  Country: US (occurrence: US)
  Receive Date: 20191008
  Receipt Date: 20191223
  Transmission Date: 20200122
  Serious: No
  Sender: FDA-Public Use
  Company Number: US-PFIZER INC-2019428866

PATIENT
  Age: 66 Year
  Sex: Female
  Weight: 104 kg

DRUGS (3)
  1. PROAIR HFA [Concomitant]
     Active Substance: ALBUTEROL SULFATE
     Dosage: UNK, AS NEEDED
     Route: 055
  2. XELJANZ [Suspect]
     Active Substance: TOFACITINIB CITRATE
     Indication: RHEUMATOID ARTHRITIS
     Dosage: 5 MG, 2X/DAY, [ONE IN THE MORNING AND ONE IN THE EVENING]
     Route: 048
     Dates: start: 201810
  3. XELJANZ [Suspect]
     Active Substance: TOFACITINIB CITRATE
     Indication: ARTHRITIS

REACTIONS (2)
  - Asthma [Recovered/Resolved]
  - Spondyloarthropathy [Unknown]

NARRATIVE: CASE EVENT DATE: 20190923
